FAERS Safety Report 4844450-8 (Version None)
Quarter: 2005Q4

REPORT INFORMATION
  Report Type: 
  Country: None (occurrence: None)
  Receive Date: 20051202
  Receipt Date: 20051123
  Transmission Date: 20060501
  Serious: Yes (Hospitalization)
  Sender: FDA-Public Use
  Company Number: US-MERCK-0511USA04179

PATIENT
  Age: 81 Year
  Sex: Male
  Weight: 89 kg

DRUGS (2)
  1. VIOXX [Suspect]
     Indication: PAIN IN EXTREMITY
     Route: 048
     Dates: start: 19991022
  2. VIOXX [Suspect]
     Indication: NECK PAIN
     Route: 048
     Dates: start: 19991022

REACTIONS (1)
  - CEREBROVASCULAR ACCIDENT [None]
